FAERS Safety Report 21492916 (Version 3)
Quarter: 2022Q4

REPORT INFORMATION
  Report Type: Spontaneous
  Country: US (occurrence: US)
  Receive Date: 20221021
  Receipt Date: 20221102
  Transmission Date: 20230113
  Serious: No
  Sender: FDA-Public Use
  Company Number: US-PFIZER INC-202201243357

PATIENT
  Age: 57 Year
  Sex: Male

DRUGS (16)
  1. PAXLOVID [Suspect]
     Active Substance: NIRMATRELVIR\RITONAVIR
     Indication: Lyme disease
     Dosage: 3 DF (6 PACK; TAKES 3 TABLETS IN THE MORNING AND 3 TABLETS AT NIGHT 300MG; 100MG DOSE PACK)
     Dates: start: 20220702, end: 20220706
  2. PAXLOVID [Suspect]
     Active Substance: NIRMATRELVIR\RITONAVIR
     Indication: Eczema
     Dosage: 3 DF (6 PACK; TAKES 3 TABLETS IN THE MORNING AND 3 TABLETS AT NIGHT 300MG; 100MG DOSE PACK)
     Dates: start: 20220806, end: 20220820
  3. PAXLOVID [Suspect]
     Active Substance: NIRMATRELVIR\RITONAVIR
     Dosage: 3 DF (6 PACK; TAKES 3 TABLETS IN THE MORNING AND 3 TABLETS AT NIGHT 300MG; 100MG DOSE PACK)
     Dates: start: 20220910
  4. METHSCOPOLAMINE BROMIDE [Concomitant]
     Active Substance: METHSCOPOLAMINE BROMIDE
     Indication: Crohn^s disease
     Dosage: 5 MG, 2X/DAY
  5. QUESTRAN [Concomitant]
     Active Substance: CHOLESTYRAMINE
     Indication: Congenital absence of bile ducts
     Dosage: HE PUTS IN LIQUID AND STIR AND SITS FOR 10 MINUTES
     Dates: start: 1983
  6. ATORVASTATIN [Concomitant]
     Active Substance: ATORVASTATIN
     Indication: Blood cholesterol increased
     Dosage: 10 MG, 1X/DAY
  7. OLMESARTAN [Concomitant]
     Active Substance: OLMESARTAN
     Indication: Blood pressure measurement
     Dosage: 20MG EVEN THAT IS TOO MUCH SO HE CUTS IT IN HALF AND TAKES 10MG
  8. LEVOTHYROXINE [Concomitant]
     Active Substance: LEVOTHYROXINE
     Indication: Hypothyroidism
     Dosage: 87 UG
  9. LEVOTHYROXINE [Concomitant]
     Active Substance: LEVOTHYROXINE
     Dosage: 112 UG, 1X/DAY
  10. NAPROSYN [Concomitant]
     Active Substance: NAPROXEN
     Indication: Pain
     Dosage: 500 MG, AS NEEDED (NEVER MORE THAN 1 A DAY)
  11. NAPROSYN [Concomitant]
     Active Substance: NAPROXEN
     Indication: Myalgia
  12. CEFTIN [Concomitant]
     Active Substance: CEFUROXIME AXETIL
     Indication: Cat scratch disease
     Dosage: UNK
     Route: 042
     Dates: end: 2016
  13. CEFTIN [Concomitant]
     Active Substance: CEFUROXIME AXETIL
     Indication: Babesiosis
     Dosage: 2000 MG, DAILY
     Route: 048
  14. AZITHROMYCIN [AZITHROMYCIN DIHYDRATE] [Concomitant]
     Indication: Cat scratch disease
     Dosage: UNK
     Route: 042
     Dates: end: 2016
  15. AZITHROMYCIN [AZITHROMYCIN DIHYDRATE] [Concomitant]
     Indication: Babesiosis
     Dosage: 500 MG, DAILY
     Route: 048
  16. AMOXICILLIN [Concomitant]
     Active Substance: AMOXICILLIN
     Indication: Cat scratch disease
     Dosage: 875 MG, 3X/DAY

REACTIONS (4)
  - Off label use [Unknown]
  - Drug effective for unapproved indication [Unknown]
  - Inappropriate schedule of product administration [Unknown]
  - Dysgeusia [Unknown]

NARRATIVE: CASE EVENT DATE: 20220101
